FAERS Safety Report 16580095 (Version 4)
Quarter: 2019Q3

REPORT INFORMATION
  Report Type: Report from Study
  Country: US (occurrence: US)
  Receive Date: 20190716
  Receipt Date: 20190820
  Transmission Date: 20191004
  Serious: Yes (Hospitalization, Other)
  Sender: FDA-Public Use
  Company Number: US-MALLINCKRODT-T201904892

PATIENT
  Age: 1 Year
  Sex: Female

DRUGS (3)
  1. REPOSITORY CORTICOTROPIN INJECTION [Suspect]
     Active Substance: CORTICOTROPIN
     Indication: INFANTILE SPASMS
     Dosage: UNK, UNK
     Route: 065
     Dates: start: 201809
  2. REPOSITORY CORTICOTROPIN INJECTION [Suspect]
     Active Substance: CORTICOTROPIN
     Dosage: 0.4 ML BID X 14 DAYS
     Route: 030
     Dates: start: 20190624, end: 20190810
  3. CABRAL [FENYRAMIDOL HYDROCHLORIDE] [Suspect]
     Active Substance: PHENYRAMIDOL HYDROCHLORIDE
     Indication: PRODUCT USED FOR UNKNOWN INDICATION
     Dosage: UNK, UNK
     Route: 065
     Dates: start: 20190813

REACTIONS (7)
  - Heart rate decreased [Not Recovered/Not Resolved]
  - Haematochezia [Unknown]
  - Muscle twitching [Unknown]
  - Pulmonary congestion [Unknown]
  - Electroencephalogram abnormal [Unknown]
  - Pyrexia [Unknown]
  - Febrile convulsion [Recovered/Resolved]

NARRATIVE: CASE EVENT DATE: 2019
